FAERS Safety Report 5757905-9 (Version None)
Quarter: 2008Q2

REPORT INFORMATION
  Report Type: 
  Country: None (occurrence: None)
  Receive Date: 20080603
  Receipt Date: 20080603
  Transmission Date: 20081010
  Serious: Yes (Other)
  Sender: FDA-Public Use
  Company Number: None

PATIENT
  Age: 59 Year
  Sex: Female
  Weight: 91 kg

DRUGS (3)
  1. DAPTOMYCIN 500MG VIALS [Suspect]
     Indication: OSTEOMYELITIS
     Dosage: 500MG IV QD
     Route: 042
     Dates: start: 20080512
  2. DAPTOMYCIN 500MG VIALS [Suspect]
     Indication: OSTEOMYELITIS
     Dosage: 500MG IV QD
     Route: 042
     Dates: start: 20080521
  3. DAPTOMYCIN 500MG VIALS [Suspect]
     Indication: OSTEOMYELITIS
     Dosage: 500MG IV QD
     Route: 042
     Dates: start: 20080522

REACTIONS (1)
  - MUSCULAR WEAKNESS [None]
